FAERS Safety Report 4566911-1 (Version None)
Quarter: 2005Q1

REPORT INFORMATION
  Report Type: 
  Country: None (occurrence: None)
  Receive Date: 20050201
  Receipt Date: 20030409
  Transmission Date: 20050727
  Serious: Yes (Other)
  Sender: FDA-Public Use
  Company Number: US-BRISTOL-MYERS SQUIBB COMPANY-12242202

PATIENT
  Age: 44 Year
  Sex: Female

DRUGS (6)
  1. STADOL [Suspect]
     Route: 045
     Dates: start: 19950902
  2. AMITRIPTYLINE [Concomitant]
  3. PROPRANOLOL HYDROCHLORIDE [Concomitant]
  4. FIORINAL [Concomitant]
  5. VICODIN [Concomitant]
  6. OXYCODONE HCL + ACETAMINOPHEN [Concomitant]

REACTIONS (5)
  - AMNESIA [None]
  - ASTHENIA [None]
  - DEPENDENCE [None]
  - DYSPNOEA [None]
  - FATIGUE [None]
